FAERS Safety Report 5029408-0 (Version None)
Quarter: 2006Q2

REPORT INFORMATION
  Report Type: 
  Country: None (occurrence: None)
  Receive Date: 20060613
  Receipt Date: 20060531
  Transmission Date: 20061013
  Serious: Yes (Other)
  Sender: FDA-Public Use
  Company Number: 2006070619

PATIENT
  Age: 5 Year
  Sex: Male

DRUGS (3)
  1. DILANTIN [Suspect]
     Indication: CONGENITAL HYDROCEPHALUS
     Dosage: ORAL
     Route: 048
  2. EPILIM (VALOPRATE SODIUM) [Concomitant]
  3. PRIMIDONE [Concomitant]

REACTIONS (3)
  - PYREXIA [None]
  - RENAL IMPAIRMENT [None]
  - SOMNOLENCE [None]
